FAERS Safety Report 6393391-6 (Version None)
Quarter: 2009Q4

REPORT INFORMATION
  Report Type: 
  Country: None (occurrence: None)
  Receive Date: 20091008
  Receipt Date: 20091001
  Transmission Date: 20100525
  Serious: Yes (Other)
  Sender: FDA-Public Use
  Company Number: JP-JNJFOC-20090903713

PATIENT
  Age: 8 Year
  Sex: Male

DRUGS (1)
  1. RISPERIDONE [Suspect]
     Indication: ATTENTION DEFICIT/HYPERACTIVITY DISORDER
     Dosage: DOSAGE AT MORNING AND NIGHT
     Route: 048

REACTIONS (3)
  - CYANOSIS [None]
  - OFF LABEL USE [None]
  - PERIPHERAL CIRCULATORY FAILURE [None]
